FAERS Safety Report 7902305-6 (Version None)
Quarter: 2011Q4

REPORT INFORMATION
  Report Type: 
  Country: None (occurrence: None)
  Receive Date: 20111108
  Receipt Date: 20111031
  Transmission Date: 20120403
  Serious: Yes (Hospitalization, Other)
  Sender: FDA-Public Use
  Company Number: US-ACTELION-A-US2011-53118

PATIENT

DRUGS (12)
  1. COUMADIN [Concomitant]
  2. ATIVAN [Concomitant]
  3. TRACLEER [Suspect]
     Indication: PULMONARY ARTERIAL HYPERTENSION
     Dosage: 125 MG, BID
     Route: 048
     Dates: start: 20110216, end: 20110701
  4. REVATIO [Concomitant]
  5. CELEXA [Concomitant]
  6. FLEXERIL [Concomitant]
  7. TRACLEER [Suspect]
     Dosage: 125 MG, BID
     Route: 048
     Dates: start: 20110701
  8. LASIX [Concomitant]
  9. LOVENOX [Concomitant]
  10. COREG [Concomitant]
  11. ASPIRIN [Concomitant]
  12. OXYGEN [Concomitant]

REACTIONS (21)
  - IRON DEFICIENCY ANAEMIA [None]
  - HEART VALVE REPLACEMENT [None]
  - CARDIAC OPERATION [None]
  - GASTROINTESTINAL HAEMORRHAGE [None]
  - DIZZINESS [None]
  - NEUTROPENIA [None]
  - ASTHENIA [None]
  - DYSPNOEA EXERTIONAL [None]
  - EROSIVE OESOPHAGITIS [None]
  - HAEMOGLOBIN DECREASED [None]
  - MEAN CELL VOLUME DECREASED [None]
  - CARDIAC PACEMAKER INSERTION [None]
  - HAEMOLYTIC ANAEMIA [None]
  - LOSS OF CONSCIOUSNESS [None]
  - HAEMATOCRIT DECREASED [None]
  - BLOOD LACTATE DEHYDROGENASE INCREASED [None]
  - FATIGUE [None]
  - FALL [None]
  - PACKED RED BLOOD CELL TRANSFUSION [None]
  - CONDITION AGGRAVATED [None]
  - WHITE BLOOD CELL COUNT DECREASED [None]
